FAERS Safety Report 8331366-8 (Version None)
Quarter: 2012Q2

REPORT INFORMATION
  Report Type: 
  Country: None (occurrence: None)
  Receive Date: 20120502
  Receipt Date: 20120423
  Transmission Date: 20120825
  Serious: Yes (Hospitalization, Other)
  Sender: FDA-Public Use
  Company Number: VE-ROCHE-1064539

PATIENT
  Sex: Female

DRUGS (5)
  1. LEVOCETIRIZINE DIHYDROCHLORIDE [Concomitant]
  2. XOLAIR [Suspect]
     Indication: ASTHMA
     Route: 058
     Dates: start: 20110301, end: 20120201
  3. SINGULAIR [Concomitant]
     Dates: start: 20100101
  4. BUDESONIDE/FORMOTEROL FUMARATE [Concomitant]
     Dates: start: 20100101
  5. ASPIRIN [Concomitant]

REACTIONS (4)
  - TUBERCULOSIS [None]
  - DEPRESSED MOOD [None]
  - PYREXIA [None]
  - AUTOIMMUNE DISORDER [None]
